FAERS Safety Report 5046485-1 (Version None)
Quarter: 2006Q3

REPORT INFORMATION
  Report Type: 
  Country: None (occurrence: None)
  Receive Date: 20060706
  Receipt Date: 20060706
  Transmission Date: 20061208
  Serious: Yes (Hospitalization)
  Sender: FDA-Public Use
  Company Number: None

PATIENT
  Age: 29 Year
  Sex: Female
  Weight: 48.9885 kg

DRUGS (2)
  1. SOMATROPIN    5 MG -APPROX- 15 IU    ELI LILLY [Suspect]
     Indication: HYPOPITUITARISM
     Dosage: USING INJECTION    ONCE DAILY   SQ
     Route: 058
     Dates: start: 20030720, end: 20031015
  2. SAIZEN [Suspect]
     Dosage: USING INJECTION   ONCE DAILY   SQ
     Route: 058
     Dates: start: 20031016, end: 20040125

REACTIONS (19)
  - ABDOMINAL PAIN [None]
  - ALOPECIA EFFLUVIUM [None]
  - BENIGN INTRACRANIAL HYPERTENSION [None]
  - CENTRAL NERVOUS SYSTEM INFECTION [None]
  - DRUG PRESCRIBING ERROR [None]
  - FALL [None]
  - FATIGUE [None]
  - IMMUNOSUPPRESSION [None]
  - INFLUENZA [None]
  - LOSS OF CONSCIOUSNESS [None]
  - MENSTRUATION IRREGULAR [None]
  - MYALGIA [None]
  - OEDEMA [None]
  - PAIN [None]
  - PHARMACEUTICAL PRODUCT COMPLAINT [None]
  - PNEUMONIA CHLAMYDIAL [None]
  - POLYGLANDULAR DISORDER [None]
  - SINUSITIS [None]
  - VISION BLURRED [None]
